FAERS Safety Report 16296686 (Version 9)
Quarter: 2021Q1

REPORT INFORMATION
  Report Type: Report from Study
  Country: None (occurrence: CH)
  Receive Date: 20190510
  Receipt Date: 20210309
  Transmission Date: 20210419
  Serious: Yes (Death, Hospitalization, Other)
  Sender: FDA-Public Use
  Company Number: CH-ABBVIE-19K-151-2775975-00

PATIENT
  Age: 80 Year
  Sex: Male
  Weight: 55.5 kg

DRUGS (21)
  1. VENCLYXTO [Suspect]
     Active Substance: VENETOCLAX
     Indication: CHRONIC LYMPHOCYTIC LEUKAEMIA
     Dosage: RAMP UP STEP 1
     Route: 048
     Dates: start: 20190424, end: 20190430
  2. MAGNESIUM [Concomitant]
     Active Substance: MAGNESIUM
     Indication: BLOOD MAGNESIUM DECREASED
     Route: 042
     Dates: start: 20190503, end: 20190512
  3. FILGRASTIM [Concomitant]
     Active Substance: FILGRASTIM
     Indication: PRODUCT USED FOR UNKNOWN INDICATION
     Route: 058
     Dates: start: 20190420, end: 20190511
  4. VENCLYXTO [Suspect]
     Active Substance: VENETOCLAX
     Dosage: RAMP UP STEP 2
     Route: 048
     Dates: start: 20190501, end: 20190507
  5. VENCLYXTO [Suspect]
     Active Substance: VENETOCLAX
     Route: 048
     Dates: start: 20190514
  6. EUTHYROX [Concomitant]
     Active Substance: LEVOTHYROXINE SODIUM
     Indication: HYPOTHYROIDISM
     Route: 048
     Dates: start: 20190507, end: 20190515
  7. VENCLYXTO [Suspect]
     Active Substance: VENETOCLAX
     Dosage: RAMP UP STEP 3
     Route: 048
     Dates: start: 20190508, end: 20190513
  8. PANTOZOL [Concomitant]
     Active Substance: PANTOPRAZOLE SODIUM
     Indication: PROPHYLAXIS
     Route: 048
     Dates: start: 20190423, end: 20190515
  9. BACTRIM [Concomitant]
     Active Substance: SULFAMETHOXAZOLE\TRIMETHOPRIM
     Indication: INFECTION PROPHYLAXIS
     Route: 048
     Dates: start: 20190313, end: 20190515
  10. VALACICLOVIR [Concomitant]
     Active Substance: VALACYCLOVIR HYDROCHLORIDE
     Indication: INFECTION PROPHYLAXIS
     Route: 048
     Dates: start: 20190313, end: 20190315
  11. PHOSPHONORM [Concomitant]
     Active Substance: ALUMINUM CHLOROHYDRATE
     Indication: BLOOD PHOSPHORUS INCREASED
     Route: 048
     Dates: start: 20190424, end: 20190515
  12. MAGNESIUM DIASPORAL [Concomitant]
     Active Substance: MAGNESIUM
     Indication: BLOOD MAGNESIUM DECREASED
     Route: 048
     Dates: start: 20190513, end: 20190514
  13. FOLINIC ACID [Concomitant]
     Active Substance: LEUCOVORIN
     Indication: ANAEMIA
     Route: 048
     Dates: start: 20190423, end: 20190515
  14. DORMICUM [Concomitant]
     Indication: SEDATION
     Route: 042
     Dates: start: 20190514, end: 20190517
  15. ZYLORIC [Concomitant]
     Active Substance: ALLOPURINOL
     Indication: CHRONIC LYMPHOCYTIC LEUKAEMIA
     Route: 048
     Dates: start: 20190423, end: 20190515
  16. CYKLOKAPRON [Concomitant]
     Active Substance: TRANEXAMIC ACID
     Indication: HAEMORRHAGE PROPHYLAXIS
     Route: 048
     Dates: start: 20190513, end: 20190517
  17. CYKLOKAPRON [Concomitant]
     Active Substance: TRANEXAMIC ACID
     Indication: HAEMORRHAGE PROPHYLAXIS
     Route: 048
     Dates: start: 20190423, end: 20190510
  18. MIRTAZAPINUM [Concomitant]
     Active Substance: MIRTAZAPINE
     Indication: INSOMNIA
     Route: 048
  19. MORPHINE [Concomitant]
     Active Substance: MORPHINE
     Indication: SEDATION
     Dosage: AS NEEDED
     Route: 042
     Dates: start: 20190514, end: 20190517
  20. RESONIUM [Concomitant]
     Active Substance: SODIUM POLYSTYRENE SULFONATE
     Indication: PRODUCT USED FOR UNKNOWN INDICATION
     Route: 048
     Dates: start: 20190424, end: 20190425
  21. TOREM [Concomitant]
     Active Substance: TORSEMIDE
     Indication: HYPERTENSION
     Dates: start: 20190510, end: 20190510

REACTIONS (11)
  - Decreased appetite [Recovered/Resolved]
  - Lung disorder [Unknown]
  - General physical health deterioration [Fatal]
  - Fatigue [Recovered/Resolved]
  - Pneumonitis [Fatal]
  - Decreased appetite [Recovered/Resolved]
  - Febrile neutropenia [Recovered/Resolved]
  - Blood bilirubin increased [Unknown]
  - Haemorrhage [Recovered/Resolved]
  - Lung disorder [Recovered/Resolved]
  - Infection [Not Recovered/Not Resolved]

NARRATIVE: CASE EVENT DATE: 20190501
